FAERS Safety Report 7479886-2 (Version None)
Quarter: 2011Q2

REPORT INFORMATION
  Report Type: 
  Country: None (occurrence: None)
  Receive Date: 20110515
  Receipt Date: 20110511
  Transmission Date: 20111010
  Serious: Yes (Hospitalization)
  Sender: FDA-Public Use
  Company Number: FR-BRISTOL-MYERS SQUIBB COMPANY-15616840

PATIENT
  Age: 14 Year
  Sex: Male

DRUGS (2)
  1. ABILIFY [Suspect]
     Dosage: 10MG,15 MG FROM MAY2010
  2. TERCIAN [Suspect]
     Dosage: 75 THEN 50 THEN 12.5MG/DAY FROM MAY2010
     Route: 048
     Dates: end: 20110210

REACTIONS (1)
  - HEPATITIS CHOLESTATIC [None]
